FAERS Safety Report 20639198 (Version 4)
Quarter: 2022Q4

REPORT INFORMATION
  Report Type: Report from Study
  Country: FR (occurrence: FR)
  Receive Date: 20220326
  Receipt Date: 20221114
  Transmission Date: 20230113
  Serious: Yes (Other)
  Sender: FDA-Public Use
  Company Number: FR-TAKEDA-2022TUS017969

PATIENT
  Sex: Female

DRUGS (19)
  1. TEDUGLUTIDE [Suspect]
     Active Substance: TEDUGLUTIDE
     Indication: Short-bowel syndrome
     Dosage: 3.59 MILLIGRAM, QD
     Route: 042
     Dates: start: 20190430, end: 20210722
  2. TEDUGLUTIDE [Suspect]
     Active Substance: TEDUGLUTIDE
     Indication: Short-bowel syndrome
     Dosage: 3.59 MILLIGRAM, QD
     Route: 042
     Dates: start: 20190430, end: 20210722
  3. TEDUGLUTIDE [Suspect]
     Active Substance: TEDUGLUTIDE
     Indication: Short-bowel syndrome
     Dosage: 3.59 MILLIGRAM, QD
     Route: 042
     Dates: start: 20190430, end: 20210722
  4. TEDUGLUTIDE [Suspect]
     Active Substance: TEDUGLUTIDE
     Indication: Short-bowel syndrome
     Dosage: 3.59 MILLIGRAM, QD
     Route: 042
     Dates: start: 20190430, end: 20210722
  5. CARBIMAZOLE [Concomitant]
     Active Substance: CARBIMAZOLE
     Indication: Hyperthyroidism
     Dosage: 20 MILLIGRAM, QD
     Route: 048
     Dates: start: 20210723, end: 20211103
  6. CARBIMAZOLE [Concomitant]
     Active Substance: CARBIMAZOLE
     Dosage: 30 MILLIGRAM, QD
     Route: 048
     Dates: start: 20211104
  7. VITAMIN D [Concomitant]
     Active Substance: VITAMIN D NOS
     Indication: Vitamin D deficiency
     Dosage: 80000 INTERNATIONAL UNIT, MONTHLY
     Route: 048
     Dates: start: 20211026
  8. PHLOROGLUCINOL [Concomitant]
     Active Substance: PHLOROGLUCINOL
     Indication: Abdominal pain
     Dosage: UNK
     Route: 048
     Dates: start: 20211026
  9. CHOLECALCIFEROL [Concomitant]
     Active Substance: CHOLECALCIFEROL
     Indication: Product used for unknown indication
     Dosage: 100000 INTERNATIONAL UNIT
     Route: 048
     Dates: start: 201410
  10. IMODIUM [Concomitant]
     Active Substance: LOPERAMIDE HYDROCHLORIDE
     Dosage: 2 GRAM, TID
     Route: 048
     Dates: start: 201410
  11. ESOMEPRAZOLE [Concomitant]
     Active Substance: ESOMEPRAZOLE
     Dosage: 40 MILLIGRAM, QD
     Route: 048
     Dates: start: 201410
  12. BISOPROLOL [Concomitant]
     Active Substance: BISOPROLOL
     Dosage: 1.25 MILLIGRAM, QD
     Route: 048
     Dates: start: 201410, end: 20211026
  13. KARDEGIC [Concomitant]
     Active Substance: ASPIRIN DL-LYSINE
     Indication: Pre-existing disease
     Dosage: 75 MILLIGRAM, QD
     Route: 048
     Dates: start: 201801
  14. CREON [Concomitant]
     Active Substance: PANCRELIPASE AMYLASE\PANCRELIPASE LIPASE\PANCRELIPASE PROTEASE
     Dosage: 25000 INTERNATIONAL UNIT, BID
     Route: 048
     Dates: start: 201804
  15. LOVENOX [Concomitant]
     Active Substance: ENOXAPARIN SODIUM
     Indication: Pre-existing disease
     Dosage: UNK
     Route: 065
     Dates: start: 201812, end: 2019
  16. MAGNESIUM [Concomitant]
     Active Substance: MAGNESIUM
     Indication: Prophylaxis
     Dosage: 100 MILLIGRAM, QD
     Route: 048
     Dates: start: 20191029
  17. PHLOROGLUCINOL [Concomitant]
     Active Substance: PHLOROGLUCINOL
     Indication: Prophylaxis
     Dosage: 1 DOSAGE FORM, TID
     Route: 048
     Dates: start: 20191029
  18. VITAMIN C [Concomitant]
     Active Substance: ASCORBIC ACID
     Indication: Vitamin C deficiency
     Dosage: 500 MILLIGRAM, BID
     Route: 048
     Dates: start: 20191114, end: 20191214
  19. SELENIUM [Concomitant]
     Active Substance: SELENIUM
     Indication: Selenium deficiency
     Dosage: 1 DOSAGE FORM, BID
     Route: 048
     Dates: start: 20191114, end: 20191114

REACTIONS (1)
  - Basedow^s disease [Not Recovered/Not Resolved]

NARRATIVE: CASE EVENT DATE: 20210701
